FAERS Safety Report 5878535-4 (Version None)
Quarter: 2008Q3

REPORT INFORMATION
  Report Type: 
  Country: None (occurrence: None)
  Receive Date: 20080911
  Receipt Date: 20080904
  Transmission Date: 20090109
  Serious: Yes (Hospitalization)
  Sender: FDA-Public Use
  Company Number: US-GENENTECH-267486

PATIENT
  Age: 82 Year
  Sex: Female
  Weight: 121.54 kg

DRUGS (4)
  1. LUCENTIS [Suspect]
     Indication: MACULAR DEGENERATION
     Dosage: UNK
     Route: 031
     Dates: start: 20080612
  2. ANTI DIABETIC AGENT [Concomitant]
     Indication: DIABETES MELLITUS
  3. ANTIHYPERTENSIVE [Concomitant]
     Indication: HYPERTENSION
  4. MEDICATION (UNK INGREDIENT) [Concomitant]
     Indication: BLOOD CHOLESTEROL INCREASED

REACTIONS (2)
  - ASTHMA [None]
  - RHINORRHOEA [None]
